FAERS Safety Report 4740765-2 (Version None)
Quarter: 2005Q3

REPORT INFORMATION
  Report Type: 
  Country: None (occurrence: None)
  Receive Date: 20050801
  Receipt Date: 20050629
  Transmission Date: 20060218
  Serious: No
  Sender: FDA-Public Use
  Company Number: 2005PV000176

PATIENT
  Age: 70 Year
  Sex: Female

DRUGS (7)
  1. BYETTA [Suspect]
     Indication: DIABETES MELLITUS NON-INSULIN-DEPENDENT
     Dosage: 5 UG;BID;SC
     Route: 058
     Dates: start: 20050629
  2. STARLIX [Concomitant]
  3. LANTUS [Concomitant]
  4. AVALIDE [Concomitant]
  5. ULTRACET [Concomitant]
  6. PLAVIX [Concomitant]
  7. ACTOS [Concomitant]

REACTIONS (2)
  - INJECTION SITE DISCOMFORT [None]
  - INJECTION SITE HAEMORRHAGE [None]
